FAERS Safety Report 16771783 (Version 1)
Quarter: 2019Q3

REPORT INFORMATION
  Report Type: Spontaneous
  Country: CN (occurrence: CN)
  Receive Date: 20190904
  Receipt Date: 20190904
  Transmission Date: 20191005
  Serious: Yes (Hospitalization, Other)
  Sender: FDA-Public Use
  Company Number: CN-CASPER PHARMA LLC-2019CAS000437

PATIENT
  Sex: Male
  Weight: 2.26 kg

DRUGS (1)
  1. NEOMYCIN, POLYMYXIN, BACITRACIN, HC [Suspect]
     Active Substance: BACITRACIN ZINC\HYDROCORTISONE\NEOMYCIN SULFATE\POLYMYXIN B SULFATE
     Indication: CIRCULATORY COLLAPSE
     Dosage: 2 MILLIGRAM/KILOGRAM, EVERY 8 HOURS
     Route: 042

REACTIONS (3)
  - Product use in unapproved indication [Unknown]
  - Hypertension [Recovered/Resolved]
  - Hypertrophic cardiomyopathy [Recovered/Resolved]
